FAERS Safety Report 8188218-6 (Version None)
Quarter: 2012Q1

REPORT INFORMATION
  Report Type: 
  Country: None (occurrence: None)
  Receive Date: 20120306
  Receipt Date: 20120228
  Transmission Date: 20120608
  Serious: Yes (Hospitalization)
  Sender: FDA-Public Use
  Company Number: NL-JNJFOC-20120214205

PATIENT
  Sex: Female
  Weight: 48 kg

DRUGS (18)
  1. VINCRISTINE [Suspect]
     Route: 042
     Dates: start: 20110624
  2. PREDNISONE TAB [Suspect]
     Indication: DIFFUSE LARGE B-CELL LYMPHOMA
     Dosage: CHEMOTHERAPY COURSE 3
     Route: 048
     Dates: start: 20110704
  3. NEUPOGEN [Suspect]
     Indication: DIFFUSE LARGE B-CELL LYMPHOMA
     Route: 058
  4. VINCRISTINE [Suspect]
     Route: 042
     Dates: start: 20110610
  5. PREDNISONE TAB [Suspect]
     Route: 048
     Dates: start: 20110624
  6. NEUPOGEN [Suspect]
     Indication: DIFFUSE LARGE B-CELL LYMPHOMA
     Route: 065
  7. CYCLOPHOSPHAMIDE [Suspect]
     Route: 042
     Dates: start: 20110610
  8. RITUXIMAB [Suspect]
     Indication: DIFFUSE LARGE B-CELL LYMPHOMA
     Route: 042
     Dates: start: 20110624
  9. DOXORUBICIN HCL [Suspect]
     Indication: DIFFUSE LARGE B-CELL LYMPHOMA
     Route: 042
     Dates: start: 20110610
  10. DOXORUBICIN HCL [Suspect]
     Route: 042
     Dates: start: 20110704
  11. VINCRISTINE [Suspect]
     Indication: DIFFUSE LARGE B-CELL LYMPHOMA
     Route: 042
     Dates: start: 20110704
  12. RITUXIMAB [Suspect]
     Route: 042
     Dates: start: 20110610
  13. PERINDOPRIL ERBUMINE [Concomitant]
     Route: 065
  14. DOXORUBICIN HCL [Suspect]
     Route: 042
     Dates: start: 20110624
  15. CYCLOPHOSPHAMIDE [Suspect]
     Indication: DIFFUSE LARGE B-CELL LYMPHOMA
     Route: 042
     Dates: start: 20110704
  16. CYCLOPHOSPHAMIDE [Suspect]
     Route: 042
     Dates: start: 20110624
  17. PREDNISONE TAB [Suspect]
     Route: 048
     Dates: start: 20110610
  18. RITUXIMAB [Suspect]
     Route: 042
     Dates: start: 20110704

REACTIONS (4)
  - STAPHYLOCOCCAL BACTERAEMIA [None]
  - SYNCOPE [None]
  - MUSCLE SPASMS [None]
  - PYREXIA [None]
